FAERS Safety Report 6585775-8 (Version None)
Quarter: 2010Q1

REPORT INFORMATION
  Report Type: 
  Country: None (occurrence: None)
  Receive Date: 20100204
  Receipt Date: 20100121
  Transmission Date: 20100710
  Serious: Yes (Other)
  Sender: FDA-Public Use
  Company Number: 2010S1000414

PATIENT
  Sex: Female

DRUGS (11)
  1. PHOSPHOSODA FLAVOR NOT SPECIFIED [Suspect]
     Indication: ENDOSCOPY UPPER GASTROINTESTINAL TRACT
     Dosage: ; PO
     Route: 048
     Dates: start: 20081101
  2. PLAVIX [Concomitant]
  3. ADVAIR DISKUS 100/50 [Concomitant]
  4. LANTUS [Concomitant]
  5. INSULIN LISPRO [Concomitant]
  6. METOPROLOL TARTRATE [Concomitant]
  7. ZELNORM [Concomitant]
  8. HUMALOG [Concomitant]
  9. MIDODRINE HYDROCHLORIDE [Concomitant]
  10. PRILOSEC [Concomitant]
  11. LYRICA [Concomitant]

REACTIONS (1)
  - RENAL DISORDER [None]
